FAERS Safety Report 23347522 (Version 8)
Quarter: 2024Q3

REPORT INFORMATION
  Report Type: Spontaneous
  Country: US (occurrence: US)
  Receive Date: 20231228
  Receipt Date: 20240723
  Transmission Date: 20241017
  Serious: Yes (Other)
  Sender: PFIZER
  Company Number: US-PFIZER INC-PV202300121891

PATIENT
  Age: 65 Year
  Sex: Female

DRUGS (3)
  1. IBRANCE [Suspect]
     Active Substance: PALBOCICLIB
     Dosage: 125 MG, 1X/DAY 28-DAY SUPPLY
     Route: 048
  2. IBRANCE [Suspect]
     Active Substance: PALBOCICLIB
     Dosage: 100 MG, CYCLIC (ONE TAB ONCE DAILY DAYS 1-21, THEN NO MEDICINE FOR 1 WEEK, SWALLOW WHOLE)
     Route: 048
  3. IBRANCE [Suspect]
     Active Substance: PALBOCICLIB
     Dosage: TAKE ONE TABLET BY MOUTH ONCE DAILY DAYS 1-21, THEN TAKE NO MEDICATION FOR 1 WEEK, SWALLOW WHOLE
     Route: 048

REACTIONS (1)
  - Neutropenia [Unknown]
